FAERS Safety Report 10412851 (Version 1)
Quarter: 2014Q3

REPORT INFORMATION
  Report Type: Spontaneous
  Country: US (occurrence: None)
  Receive Date: 20140826
  Receipt Date: 20140826
  Transmission Date: 20150326
  Serious: No
  Sender: FDA-Public Use
  Company Number: None

PATIENT
  Age: 25 Year
  Sex: Female
  Weight: 58.97 kg

DRUGS (1)
  1. AMOXICILLIN. [Suspect]
     Active Substance: AMOXICILLIN
     Dosage: 2 PILLS, TWICE DAILY, TAKEN BY MOUTH
     Route: 048

REACTIONS (3)
  - Stomatitis [None]
  - Aphagia [None]
  - Pharyngitis streptococcal [None]

NARRATIVE: CASE EVENT DATE: 20140815
